FAERS Safety Report 21844581 (Version 2)
Quarter: 2023Q1

REPORT INFORMATION
  Report Type: Spontaneous
  Country: US (occurrence: US)
  Receive Date: 20230110
  Receipt Date: 20230119
  Transmission Date: 20230417
  Serious: Yes (Hospitalization, Other)
  Sender: FDA-Public Use
  Company Number: US-JUBILANT CADISTA PHARMACEUTICALS-2022JUB00512

PATIENT
  Age: 6 Decade
  Sex: Female

DRUGS (2)
  1. LEVOFLOXACIN [Suspect]
     Active Substance: LEVOFLOXACIN
     Indication: Pyelonephritis chronic
     Dosage: OVERDOSE; 500 MG, 1X/DAY
     Route: 048
  2. LEVOFLOXACIN [Suspect]
     Active Substance: LEVOFLOXACIN
     Dosage: OVERDOSE; 7000 MG 1 TOTAL; TOOK THE ENTIRE BOTTLE OF 14 TABLETS
     Route: 048

REACTIONS (10)
  - Accidental overdose [Recovered/Resolved]
  - Nausea [Recovered/Resolved]
  - Tremor [Recovered/Resolved]
  - Muscle rigidity [Recovered/Resolved]
  - Anxiety [Recovered/Resolved]
  - Lacunar stroke [Recovered/Resolved]
  - Tendon disorder [Recovered/Resolved]
  - Transient ischaemic attack [Recovered/Resolved]
  - Flushing [Recovered/Resolved]
  - Muscle spasms [Recovered/Resolved]
